FAERS Safety Report 4727374-6 (Version None)
Quarter: 2005Q3

REPORT INFORMATION
  Report Type: 
  Country: None (occurrence: None)
  Receive Date: 20050727
  Receipt Date: 20050727
  Transmission Date: 20060218
  Serious: Yes (Hospitalization)
  Sender: FDA-Public Use
  Company Number: None

PATIENT
  Age: 71 Year
  Sex: Male
  Weight: 83.9154 kg

DRUGS (8)
  1. WARFARIN [Suspect]
     Indication: ATRIAL FIBRILLATION
     Dosage: 2 MG PO DAILY
     Route: 048
  2. NAMENDA [Concomitant]
  3. COUMADIN [Concomitant]
  4. TERAZOCIN [Concomitant]
  5. ZANTAC [Concomitant]
  6. ZETIA [Concomitant]
  7. HYZAAR [Concomitant]
  8. SERTRALINE HCL [Concomitant]

REACTIONS (6)
  - DIZZINESS [None]
  - FAECES DISCOLOURED [None]
  - MELAENA [None]
  - NAUSEA [None]
  - ORTHOSTATIC HYPOTENSION [None]
  - VOMITING [None]
